FAERS Safety Report 19225797 (Version 1)
Quarter: 2021Q2

REPORT INFORMATION
  Report Type: Spontaneous
  Country: US (occurrence: US)
  Receive Date: 20210505
  Receipt Date: 20210505
  Transmission Date: 20210717
  Serious: No
  Sender: FDA-Public Use
  Company Number: US-ROCHE-2642396

PATIENT
  Sex: Male
  Weight: 83.99 kg

DRUGS (1)
  1. AVASTIN [Suspect]
     Active Substance: BEVACIZUMAB
     Indication: COLON CANCER
     Route: 065

REACTIONS (4)
  - Hernia [Unknown]
  - Liver disorder [Unknown]
  - Weight decreased [Unknown]
  - Mobility decreased [Unknown]
